FAERS Safety Report 24267166 (Version 3)
Quarter: 2024Q4

REPORT INFORMATION
  Report Type: Spontaneous
  Country: JP (occurrence: JP)
  Receive Date: 20240830
  Receipt Date: 20241121
  Transmission Date: 20250114
  Serious: Yes (Hospitalization, Other)
  Sender: GENMAB
  Company Number: JP-GENMAB-2024-02867

PATIENT
  Age: 82 Year
  Sex: Female

DRUGS (9)
  1. EPKINLY [Suspect]
     Active Substance: EPCORITAMAB-BYSP
     Indication: Diffuse large B-cell lymphoma refractory
     Dosage: UNK, FIRST DOSE, SECOND DOSE OF CYCLE 1
     Route: 058
     Dates: start: 20240327, end: 20240403
  2. EPKINLY [Suspect]
     Active Substance: EPCORITAMAB-BYSP
     Dosage: UNK, RESUMED TREATMENT FROM THE FIRST DOSE, ADMINISTERED UP TO 3 CYCLES AND COMPLETED
     Route: 058
     Dates: start: 20240501, end: 202407
  3. DECADRON [Concomitant]
     Active Substance: DEXAMETHASONE
     Dosage: 16 MILLIGRAM, THE FIRST AND THE SECOND ADMINISTRATION IN CYCLE 1
     Dates: start: 202403, end: 202404
  4. DECADRON [Concomitant]
     Active Substance: DEXAMETHASONE
     Dosage: 6.6 MILLIGRAM
     Dates: start: 202404, end: 202404
  5. DECADRON [Concomitant]
     Active Substance: DEXAMETHASONE
     Dosage: 4.95 MILLIGRAM
     Dates: start: 20240410, end: 202404
  6. DECADRON [Concomitant]
     Active Substance: DEXAMETHASONE
     Dosage: 16 MILLIGRAM, FROM THE FIRST ADMINISTRATION IN CYCLE 1 (ADMINISTRATION WAS RESUMED) TO THE FOURTH AD
     Dates: start: 202405, end: 202407
  7. DECADRON [Concomitant]
     Active Substance: DEXAMETHASONE
     Dosage: 16 MILLIGRAM, FROM THE SECOND ADMINISTRATION IN CYCLE 2 OF EPKINLY TO THE FOURTH ADMINISTRATION IN C
     Dates: start: 202406, end: 202407
  8. PIPERACILLIN SODIUM\TAZOBACTAM SODIUM [Concomitant]
     Active Substance: PIPERACILLIN SODIUM\TAZOBACTAM SODIUM
     Indication: Respiratory alkalosis
     Dosage: UNK
     Dates: start: 202403
  9. PIPERACILLIN SODIUM\TAZOBACTAM SODIUM [Concomitant]
     Active Substance: PIPERACILLIN SODIUM\TAZOBACTAM SODIUM
     Indication: Metabolic acidosis

REACTIONS (11)
  - Diffuse large B-cell lymphoma [Unknown]
  - COVID-19 pneumonia [Unknown]
  - Febrile neutropenia [Unknown]
  - Cytokine release syndrome [Unknown]
  - Febrile neutropenia [Unknown]
  - Cytokine release syndrome [Unknown]
  - Peroneal nerve palsy [Unknown]
  - COVID-19 [Unknown]
  - Oedema peripheral [Unknown]
  - Cytomegalovirus infection [Unknown]
  - Drug ineffective [Unknown]

NARRATIVE: CASE EVENT DATE: 20240101
